FAERS Safety Report 18362329 (Version 1)
Quarter: 2020Q4

REPORT INFORMATION
  Report Type: Spontaneous
  Country: US (occurrence: US)
  Receive Date: 20201008
  Receipt Date: 20201008
  Transmission Date: 20210114
  Serious: Yes (Death, Hospitalization, Other)
  Sender: FDA-Public Use
  Company Number: US-ABBVIE-20K-163-3601280-00

PATIENT
  Sex: Male
  Weight: 99.79 kg

DRUGS (4)
  1. PREDNISONE. [Concomitant]
     Active Substance: PREDNISONE
     Indication: PRODUCT USED FOR UNKNOWN INDICATION
  2. XELJANZ [Suspect]
     Active Substance: TOFACITINIB CITRATE
     Indication: RHEUMATOID ARTHRITIS
     Route: 065
  3. HUMIRA [Suspect]
     Active Substance: ADALIMUMAB
     Indication: PRODUCT USED FOR UNKNOWN INDICATION
     Route: 058
  4. XELJANZ [Suspect]
     Active Substance: TOFACITINIB CITRATE
     Route: 065
     Dates: end: 20200721

REACTIONS (10)
  - Lung neoplasm malignant [Fatal]
  - Hypophagia [Unknown]
  - Hospitalisation [Unknown]
  - Drug ineffective [Unknown]
  - Pneumonia [Unknown]
  - Blood pressure measurement [Unknown]
  - Gastrointestinal haemorrhage [Unknown]
  - Depression [Unknown]
  - Failure to thrive [Unknown]
  - Adverse drug reaction [Unknown]
